FAERS Safety Report 8082426 (Version 2)
Quarter: 2012Q4

REPORT INFORMATION
  Report Type: Report from Study
  Country: DE (occurrence: DE)
  Receive Date: 20110809
  Receipt Date: 20120914
  Transmission Date: 20130627
  Serious: Yes (Hospitalization)
  Sender: FDA-Public Use
  Company Number: DE-GLAXOSMITHKLINE-B0737863A

PATIENT
  Age: 68 Year
  Sex: Male

DRUGS (19)
  1. CHLORAMBUCIL [Suspect]
     Indication: CHRONIC LYMPHOCYTIC LEUKAEMIA
     Dosage: 34MG Every two weeks
     Route: 048
     Dates: start: 20100914, end: 20110308
  2. RITUXIMAB [Suspect]
     Indication: CHRONIC LYMPHOCYTIC LEUKAEMIA
     Dosage: 906MG Monthly
     Route: 042
     Dates: start: 20100914, end: 20110222
  3. RAMIPRIL [Concomitant]
     Dosage: 5MG per day
     Dates: end: 20110131
  4. FERRO SANOL [Concomitant]
     Dates: end: 20110129
  5. AMLODIPINE [Concomitant]
     Dosage: 10MG per day
     Dates: start: 20110131
  6. ATACAND [Concomitant]
     Dosage: 8MG per day
     Dates: start: 201101
  7. ASS [Concomitant]
     Dosage: 100MG per day
     Dates: start: 201101
  8. SIMVASTATIN [Concomitant]
     Dosage: 10MG per day
     Dates: start: 201101, end: 201105
  9. PENTALONG [Concomitant]
     Dosage: 100MG per day
     Dates: start: 201101, end: 201105
  10. AMPHO-MORONAL [Concomitant]
     Dosage: 4ML per day
     Dates: start: 201101, end: 201105
  11. PANTOZOL [Concomitant]
  12. PREDNISOLON [Concomitant]
  13. SALMETEROL [Concomitant]
     Dates: start: 201101, end: 201105
  14. AMIODARONE [Concomitant]
     Dates: start: 201105
  15. TORASEMIDE [Concomitant]
     Dosage: 100MG per day
     Dates: start: 201105
  16. MARCUMAR [Concomitant]
     Dates: start: 201105
  17. METOPROLOL [Concomitant]
     Dosage: 23.75MG per day
     Dates: start: 201105
  18. DREISAVIT [Concomitant]
     Dosage: 1TAB per day
     Route: 048
     Dates: start: 201101, end: 20110726
  19. SULTANOL [Concomitant]
     Dosage: 4PUFF per day
     Dates: start: 201105

REACTIONS (3)
  - Infective exacerbation of chronic obstructive airways disease [Recovered/Resolved]
  - Endocarditis [Recovered/Resolved]
  - Staphylococcal infection [Recovered/Resolved with Sequelae]
